FAERS Safety Report 11558036 (Version 4)
Quarter: 2016Q2

REPORT INFORMATION
  Report Type: Spontaneous
  Country: CA (occurrence: CA)
  Receive Date: 20150928
  Receipt Date: 20160405
  Transmission Date: 20160815
  Serious: Yes (Other)
  Sender: FDA-Public Use
  Company Number: CA-ROCHE-1638740

PATIENT
  Age: 65 Year
  Sex: Male

DRUGS (12)
  1. XOLAIR [Suspect]
     Active Substance: OMALIZUMAB
     Route: 058
     Dates: start: 20141210
  2. XOLAIR [Suspect]
     Active Substance: OMALIZUMAB
     Indication: ASTHMA
     Route: 058
     Dates: start: 20131002
  3. XOLAIR [Suspect]
     Active Substance: OMALIZUMAB
     Route: 065
     Dates: start: 20151110
  4. XOLAIR [Suspect]
     Active Substance: OMALIZUMAB
     Route: 058
     Dates: start: 20160330
  5. XOLAIR [Suspect]
     Active Substance: OMALIZUMAB
     Route: 058
     Dates: start: 20140319
  6. XOLAIR [Suspect]
     Active Substance: OMALIZUMAB
     Route: 058
     Dates: start: 20131030
  7. XOLAIR [Suspect]
     Active Substance: OMALIZUMAB
     Route: 058
     Dates: start: 20140416
  8. XOLAIR [Suspect]
     Active Substance: OMALIZUMAB
     Route: 058
     Dates: start: 20150916
  9. VENTOLIN [Concomitant]
     Active Substance: ALBUTEROL SULFATE
  10. XOLAIR [Suspect]
     Active Substance: OMALIZUMAB
     Route: 058
     Dates: start: 20140820
  11. XOLAIR [Suspect]
     Active Substance: OMALIZUMAB
     Route: 058
     Dates: start: 20140219
  12. XOLAIR [Suspect]
     Active Substance: OMALIZUMAB
     Route: 058
     Dates: start: 20150210

REACTIONS (19)
  - Chest discomfort [Unknown]
  - Cough [Unknown]
  - Nasal congestion [Unknown]
  - Asthma [Recovering/Resolving]
  - Oropharyngeal pain [Not Recovered/Not Resolved]
  - Exercise tolerance decreased [Unknown]
  - Lung infection [Unknown]
  - Respiratory disorder [Unknown]
  - Productive cough [Unknown]
  - Crepitations [Unknown]
  - Wheezing [Unknown]
  - Body temperature decreased [Unknown]
  - Sinus congestion [Recovering/Resolving]
  - Dyspnoea [Unknown]
  - Oxygen saturation decreased [Unknown]
  - Nasopharyngitis [Recovering/Resolving]
  - Lower respiratory tract infection [Unknown]
  - Malaise [Not Recovered/Not Resolved]
  - Ear pain [Not Recovered/Not Resolved]

NARRATIVE: CASE EVENT DATE: 20131030
